FAERS Safety Report 24557344 (Version 2)
Quarter: 2024Q4

REPORT INFORMATION
  Report Type: Report from Study
  Country: US (occurrence: US)
  Receive Date: 20241028
  Receipt Date: 20241129
  Transmission Date: 20250115
  Serious: Yes (Hospitalization)
  Sender: ABBVIE
  Company Number: US-ABBVIE-5977888

PATIENT
  Age: 42 Year
  Sex: Male
  Weight: 109 kg

DRUGS (25)
  1. HUMIRA [Suspect]
     Active Substance: ADALIMUMAB
     Indication: Colitis ulcerative
     Dosage: CITRATE FREE
     Route: 058
     Dates: start: 20240815
  2. TESTOSTERONE [Concomitant]
     Active Substance: TESTOSTERONE
     Indication: Blood testosterone decreased
     Dates: start: 2022
  3. TESTOSTERONE [Concomitant]
     Active Substance: TESTOSTERONE
     Indication: Blood testosterone decreased
     Dates: start: 2022
  4. GLIPIZIDE XL [Concomitant]
     Active Substance: GLIPIZIDE
     Indication: Blood cholesterol increased
     Dates: start: 202407
  5. METFORMIN [Concomitant]
     Active Substance: METFORMIN HYDROCHLORIDE
     Indication: Type 2 diabetes mellitus
     Dates: start: 2022
  6. METFORMIN [Concomitant]
     Active Substance: METFORMIN HYDROCHLORIDE
     Indication: Type 2 diabetes mellitus
     Dates: start: 2022
  7. OMEPRAZOLE [Concomitant]
     Active Substance: OMEPRAZOLE
     Indication: Gastrooesophageal reflux disease
     Dates: start: 2019
  8. OMEPRAZOLE [Concomitant]
     Active Substance: OMEPRAZOLE
     Indication: Gastrooesophageal reflux disease
     Dates: start: 2019
  9. CITALOPRAM [Concomitant]
     Active Substance: CITALOPRAM
     Indication: Depression
     Dates: start: 2021
  10. CITALOPRAM [Concomitant]
     Active Substance: CITALOPRAM
     Indication: Depression
     Dates: start: 2021
  11. ADDERALL [Concomitant]
     Active Substance: AMPHETAMINE ASPARTATE\AMPHETAMINE SULFATE\DEXTROAMPHETAMINE SACCHARATE\DEXTROAMPHETAMINE SULFATE
     Indication: Product used for unknown indication
     Dosage: XR, 20 MG, ORAL, DAILY RT?STRENGTH- 20 MG 24 HR CAPSULE
     Route: 048
  12. LIPITOR [Concomitant]
     Active Substance: ATORVASTATIN CALCIUM
     Indication: Product used for unknown indication
     Dosage: 20 MG, ORAL, DAILY
     Route: 048
  13. WELLBUTRIN XL [Concomitant]
     Active Substance: BUPROPION HYDROCHLORIDE
     Indication: Product used for unknown indication
     Dosage: 300 MG, ORAL, DAILY RT
     Route: 048
  14. CELEXA [Concomitant]
     Active Substance: CITALOPRAM HYDROBROMIDE
     Indication: Product used for unknown indication
     Dosage: 20 MG, ORAL, DAILY
     Route: 048
  15. BENTYL [Concomitant]
     Active Substance: DICYCLOMINE HYDROCHLORIDE
     Indication: Product used for unknown indication
     Dosage: TIME INTERVAL: 0.33333333 DAYS: 20 MG, ORAL, 3 TIMES DAILY
     Route: 048
  16. GLUCOPHAGE XR [Concomitant]
     Active Substance: METFORMIN HYDROCHLORIDE
     Indication: Product used for unknown indication
     Dosage: 500 MG, ORAL, 2 TIMES DAILY
     Route: 048
  17. FLAGYL [Concomitant]
     Active Substance: METRONIDAZOLE\METRONIDAZOLE HYDROCHLORIDE
     Indication: Product used for unknown indication
     Dosage: TIME INTERVAL: 0.33333333 DAYS: 500 MG, ORAL, 3 TIMES DAILY
     Route: 048
  18. PRILOSEC [Concomitant]
     Active Substance: OMEPRAZOLE MAGNESIUM
     Indication: Product used for unknown indication
     Dosage: 20 MG, ORAL, DAILY RT
     Route: 048
  19. TESTOSTERONE [Concomitant]
     Active Substance: TESTOSTERONE
     Indication: Product used for unknown indication
     Dosage: 100 MG, INTRAMUSCULAR, EVERY 7 DAYS
     Route: 030
  20. ULTRAM [Concomitant]
     Active Substance: TRAMADOL HYDROCHLORIDE
     Indication: Product used for unknown indication
     Dosage: 50 MG, ORAL, EVERY 4 HOURS
     Route: 048
  21. AMOXICILLIN\CLAVULANIC ACID [Concomitant]
     Active Substance: AMOXICILLIN\CLAVULANIC ACID
     Indication: Ear infection
     Dosage: STRENGTH- 875 MG-125MG
     Route: 048
     Dates: start: 20240830, end: 20240904
  22. AMOXICILLIN\CLAVULANIC ACID [Concomitant]
     Active Substance: AMOXICILLIN\CLAVULANIC ACID
     Indication: Ear infection
     Dosage: STRENGTH- 875 MG-125MG
     Route: 048
     Dates: start: 20240210, end: 20240210
  23. XANAX [Concomitant]
     Active Substance: ALPRAZOLAM
     Indication: Product used for unknown indication
     Dosage: 0.5 MG, ORAL, DAILY RT
     Route: 048
  24. AUGMENTIN [Concomitant]
     Active Substance: AMOXICILLIN\CLAVULANATE POTASSIUM
     Indication: Product used for unknown indication
     Dosage: STRENGTH- 875- 125 MG TABLET?1 TABLET, ORAL, 2 TIMES DAILY
     Route: 048
  25. BACTRIM DS [Concomitant]
     Active Substance: SULFAMETHOXAZOLE\TRIMETHOPRIM
     Indication: Ear infection
     Dosage: STRENGTH- 800 MG-160 MG
     Route: 048
     Dates: start: 20240910, end: 20240920

REACTIONS (26)
  - Colitis [Recovered/Resolved]
  - Pain [Unknown]
  - White blood cell disorder [Not Recovered/Not Resolved]
  - Neutrophil count abnormal [Recovering/Resolving]
  - Lymphocyte count abnormal [Recovering/Resolving]
  - Eosinophil count abnormal [Recovering/Resolving]
  - Neutrophil count abnormal [Recovering/Resolving]
  - Monocyte count abnormal [Recovering/Resolving]
  - Blood glucose abnormal [Recovering/Resolving]
  - Blood osmolarity abnormal [Recovering/Resolving]
  - Lipase abnormal [Recovering/Resolving]
  - Specific gravity urine abnormal [Recovering/Resolving]
  - Glucose urine present [Recovering/Resolving]
  - Abdominal pain upper [Unknown]
  - Abdominal pain lower [Unknown]
  - Nausea [Unknown]
  - Sinus tachycardia [Unknown]
  - Electrocardiogram abnormal [Unknown]
  - Rectal haemorrhage [Unknown]
  - Gastrointestinal wall thickening [Unknown]
  - Gastrointestinal motility disorder [Unknown]
  - Hiatus hernia [Unknown]
  - Gastrointestinal wall thickening [Unknown]
  - Pancreatic duct dilatation [Unknown]
  - Atelectasis [Unknown]
  - Lung infiltration [Unknown]

NARRATIVE: CASE EVENT DATE: 20241001
